FAERS Safety Report 8143952-9 (Version None)
Quarter: 2012Q1

REPORT INFORMATION
  Report Type: 
  Country: None (occurrence: None)
  Receive Date: 20120217
  Receipt Date: 20120217
  Transmission Date: 20120608
  Serious: Yes (Other)
  Sender: FDA-Public Use
  Company Number: None

PATIENT
  Age: 65 Year
  Sex: Female
  Weight: 6304.9 kg

DRUGS (1)
  1. LEVOTHYROXINE SODIUM [Suspect]
     Indication: HYPOTHYROIDISM
     Route: 048
     Dates: start: 20110820, end: 20111125

REACTIONS (7)
  - PRODUCT QUALITY ISSUE [None]
  - EYE PAIN [None]
  - SKIN DISCOLOURATION [None]
  - FAECES DISCOLOURED [None]
  - OCULAR HYPERAEMIA [None]
  - HYPERTENSION [None]
  - INSOMNIA [None]
